FAERS Safety Report 8007718-2 (Version None)
Quarter: 2011Q4

REPORT INFORMATION
  Report Type: 
  Country: None (occurrence: None)
  Receive Date: 20111227
  Receipt Date: 20110218
  Transmission Date: 20120403
  Serious: No
  Sender: FDA-Public Use
  Company Number: US-ABBOTT-11P-163-0707231-00

PATIENT
  Sex: Male

DRUGS (3)
  1. LUPRON DEPOT [Suspect]
     Indication: PROSTATE CANCER
     Route: 058
     Dates: start: 20110110
  2. LUPRON DEPOT [Suspect]
     Dates: start: 20101213, end: 20101213
  3. UNKNOWN BLOOD PRESSURE MEDICATION [Concomitant]
     Indication: HYPERTENSION

REACTIONS (6)
  - SWELLING [None]
  - GENERALISED ERYTHEMA [None]
  - INJECTION SITE PAIN [None]
  - INJECTION SITE ERYTHEMA [None]
  - BURNING SENSATION [None]
  - PRURITUS GENERALISED [None]
